FAERS Safety Report 10874639 (Version 2)
Quarter: 2015Q2

REPORT INFORMATION
  Report Type: Spontaneous
  Country: US (occurrence: US)
  Receive Date: 20150227
  Receipt Date: 20150601
  Transmission Date: 20150821
  Serious: Yes (Other)
  Sender: FDA-Public Use
  Company Number: US-BAYER-2015-025901

PATIENT
  Age: 31 Year
  Sex: Female
  Weight: 74.38 kg

DRUGS (1)
  1. MIRENA [Suspect]
     Active Substance: LEVONORGESTREL
     Indication: CONTRACEPTION
     Dosage: 20 MCG/24HR, CONT
     Route: 015
     Dates: start: 200911, end: 20140918

REACTIONS (7)
  - Device dislocation [Recovered/Resolved]
  - Device difficult to use [Recovered/Resolved]
  - Procedural pain [None]
  - Device difficult to use [Recovered/Resolved]
  - Post procedural haemorrhage [None]
  - Procedural pain [None]
  - Off label use of device [None]

NARRATIVE: CASE EVENT DATE: 2009
